FAERS Safety Report 8264760-4 (Version None)
Quarter: 2012Q2

REPORT INFORMATION
  Report Type: 
  Country: None (occurrence: None)
  Receive Date: 20120406
  Receipt Date: 20120327
  Transmission Date: 20120825
  Serious: Yes (Hospitalization)
  Sender: FDA-Public Use
  Company Number: JP-JNJFOC-20120400977

PATIENT
  Age: 60 Year
  Sex: Female
  Weight: 52 kg

DRUGS (16)
  1. REMICADE [Suspect]
     Dosage: FIRST DOSE
     Route: 042
     Dates: start: 20110630
  2. PREDNISOLONE [Suspect]
     Indication: COLITIS ULCERATIVE
     Route: 048
     Dates: start: 20110811, end: 20110824
  3. PREDNISOLONE [Suspect]
     Route: 048
     Dates: start: 20110620, end: 20110713
  4. PREDNISOLONE [Suspect]
     Route: 048
     Dates: start: 20110921, end: 20111005
  5. PREDNISOLONE [Suspect]
     Route: 048
     Dates: start: 20110907, end: 20110920
  6. PREDNISOLONE [Suspect]
     Route: 048
     Dates: start: 20110528, end: 20110619
  7. PREDNISOLONE [Suspect]
     Route: 048
     Dates: start: 20110825, end: 20110906
  8. FERRUM [Concomitant]
     Indication: ANAEMIA
     Route: 048
     Dates: start: 20110528, end: 20111005
  9. REMICADE [Suspect]
     Dosage: THIRD DOSE
     Route: 042
     Dates: start: 20110811
  10. REMICADE [Suspect]
     Indication: COLITIS ULCERATIVE
     Route: 042
     Dates: start: 20111006
  11. PREDNISOLONE [Suspect]
     Route: 048
     Dates: start: 20110801, end: 20110810
  12. ASACOL [Concomitant]
     Indication: COLITIS ULCERATIVE
     Route: 048
     Dates: start: 20110501, end: 20111201
  13. MIYA BM [Concomitant]
     Indication: COLITIS ULCERATIVE
     Dosage: 6 TAB
     Route: 048
     Dates: end: 20111201
  14. REMICADE [Suspect]
     Route: 042
     Dates: start: 20110714
  15. REMICADE [Suspect]
     Dosage: 4TH DOSE
     Route: 042
     Dates: start: 20110825
  16. PREDNISOLONE [Suspect]
     Route: 048
     Dates: start: 20110714, end: 20110731

REACTIONS (1)
  - HERPES ZOSTER [None]
